FAERS Safety Report 13897442 (Version 1)
Quarter: 2017Q3

REPORT INFORMATION
  Report Type: Spontaneous
  Country: US (occurrence: US)
  Receive Date: 20170823
  Receipt Date: 20170823
  Transmission Date: 20171127
  Serious: No
  Sender: FDA-Public Use
  Company Number: US-SA-2016SA144713

PATIENT
  Age: 81 Year
  Sex: Female

DRUGS (4)
  1. MULTAQ [Suspect]
     Active Substance: DRONEDARONE
     Route: 065
     Dates: start: 201606
  2. ELIQUIS [Concomitant]
     Active Substance: APIXABAN
  3. METOPROLOL. [Suspect]
     Active Substance: METOPROLOL
     Route: 065
  4. METOPROLOL. [Suspect]
     Active Substance: METOPROLOL
     Route: 065

REACTIONS (2)
  - Migraine with aura [Unknown]
  - Fatigue [Unknown]
